FAERS Safety Report 11872638 (Version 2)
Quarter: 2016Q1

REPORT INFORMATION
  Report Type: Report from Study
  Country: US (occurrence: US)
  Receive Date: 20151228
  Receipt Date: 20160215
  Transmission Date: 20160526
  Serious: No
  Sender: FDA-Public Use
  Company Number: PHEH2015US026766

PATIENT
  Sex: Female
  Weight: 58.5 kg

DRUGS (7)
  1. PREDNISONE. [Concomitant]
     Active Substance: PREDNISONE
     Indication: LUPUS-LIKE SYNDROME
     Dosage: 4 MG, BID
     Route: 065
     Dates: end: 20151207
  2. METHYLDOPA. [Concomitant]
     Active Substance: METHYLDOPA
     Indication: HYPERTENSION
     Dosage: 500 MG, BID
     Route: 065
     Dates: start: 20151214
  3. LISINOPRIL. [Concomitant]
     Active Substance: LISINOPRIL
     Indication: HYPERTENSION
     Dosage: 20 MG, Q12H
     Route: 065
     Dates: end: 20151207
  4. PREDNISONE. [Concomitant]
     Active Substance: PREDNISONE
     Dosage: 4 MG, QD
     Route: 065
  5. PLAQUENIL [Concomitant]
     Active Substance: HYDROXYCHLOROQUINE SULFATE
     Indication: LUPUS-LIKE SYNDROME
     Dosage: 200 MG, BID
     Route: 065
  6. PRENATAL VITAMIN [Concomitant]
     Active Substance: VITAMINS
     Indication: PREGNANCY
     Dosage: 1 DF, QD
     Route: 065
     Dates: start: 20151214
  7. MYCOPHENOLATE MOFETIL. [Suspect]
     Active Substance: MYCOPHENOLATE MOFETIL
     Indication: LUPUS-LIKE SYNDROME
     Dosage: 500 MG, BID
     Route: 048
     Dates: end: 20151207

REACTIONS (1)
  - Maternal exposure during pregnancy [Unknown]
